FAERS Safety Report 7021524-7 (Version None)
Quarter: 2010Q3

REPORT INFORMATION
  Report Type: 
  Country: None (occurrence: None)
  Receive Date: 20100929
  Receipt Date: 20100921
  Transmission Date: 20110219
  Serious: Yes (Hospitalization)
  Sender: FDA-Public Use
  Company Number: US-GENENTECH-306947

PATIENT
  Age: 79 Year
  Sex: Male

DRUGS (8)
  1. RANIBIZUMAB [Suspect]
     Indication: MACULAR DEGENERATION
     Dosage: UNK
     Route: 031
     Dates: start: 20090428
  2. ICAPS [Concomitant]
     Indication: MEDICAL DIET
     Dosage: UNK
     Dates: start: 20000101
  3. TENORMIN [Concomitant]
     Indication: HYPERTENSION
     Dosage: UNK
     Dates: start: 20050101
  4. ZANTAC [Concomitant]
     Indication: GASTROOESOPHAGEAL REFLUX DISEASE
     Dosage: UNK
     Dates: start: 20040101
  5. CRESTOR [Concomitant]
     Indication: HYPERCHOLESTEROLAEMIA
     Dosage: UNK
     Dates: start: 20080401
  6. NORVASC [Concomitant]
     Indication: HYPERTENSION
     Dosage: UNK
     Dates: start: 20080401
  7. OMEGA-3 MARINE TRIGLYCERIDES [Concomitant]
     Indication: MEDICAL DIET
     Dosage: UNK
     Dates: start: 20070101
  8. LYSINE [Concomitant]
     Indication: MEDICAL DIET
     Dosage: UNK
     Dates: start: 20040101

REACTIONS (1)
  - CEREBRAL HAEMORRHAGE [None]
